FAERS Safety Report 25700227 (Version 1)
Quarter: 2025Q3

REPORT INFORMATION
  Report Type: Spontaneous
  Country: US (occurrence: US)
  Receive Date: 20250819
  Receipt Date: 20250819
  Transmission Date: 20251020
  Serious: No
  Sender: ARCUTIS
  Company Number: US-ARCUTIS BIOTHERAPEUTICS INC-2025AER000491

PATIENT
  Age: 34 Year
  Sex: Male

DRUGS (1)
  1. ZORYVE [Suspect]
     Active Substance: ROFLUMILAST
     Indication: Seborrhoeic dermatitis
     Dosage: UNK, QD
     Route: 061
     Dates: start: 202504

REACTIONS (3)
  - Application site pain [Unknown]
  - Pain of skin [Unknown]
  - Headache [Unknown]
